FAERS Safety Report 8620899-2 (Version None)
Quarter: 2012Q3

REPORT INFORMATION
  Report Type: 
  Country: None (occurrence: None)
  Receive Date: 20120824
  Receipt Date: 20120816
  Transmission Date: 20120928
  Serious: Yes (Other)
  Sender: FDA-Public Use
  Company Number: PHHY2012JP071373

PATIENT
  Age: 65 Year
  Sex: Female

DRUGS (3)
  1. CLOPIDEGREL [Suspect]
     Indication: ANTIPLATELET THERAPY
     Dosage: UNK
     Route: 048
  2. ARGATROBAN [Concomitant]
     Route: 042
  3. ACETYLSALICYLIC ACID SRT [Suspect]
     Indication: ANTIPLATELET THERAPY
     Dosage: UNK
     Route: 048

REACTIONS (1)
  - CEREBRAL HAEMORRHAGE [None]
